FAERS Safety Report 22145845 (Version 1)
Quarter: 2023Q1

REPORT INFORMATION
  Report Type: Spontaneous
  Country: US (occurrence: None)
  Receive Date: 20230327
  Receipt Date: 20230327
  Transmission Date: 20230418
  Serious: Yes (Other)
  Sender: FDA-Public Use
  Company Number: None

PATIENT
  Age: 37 Year
  Sex: Female
  Weight: 105.75 kg

DRUGS (9)
  1. KETAMINE [Suspect]
     Active Substance: KETAMINE
     Indication: Depression
     Dosage: OTHER STRENGTH : MG/KG, 180MG;?FREQUENCY : EVERY OTHER WEEK;?
     Route: 030
     Dates: start: 20210701, end: 20220902
  2. KETAMINE [Suspect]
     Active Substance: KETAMINE
     Indication: Off label use
  3. PRAMIPEXOLE [Concomitant]
     Active Substance: PRAMIPEXOLE
  4. BUSPAR [Concomitant]
     Active Substance: BUSPIRONE HYDROCHLORIDE
  5. XANAX [Concomitant]
     Active Substance: ALPRAZOLAM
  6. VALIUM [Concomitant]
     Active Substance: DIAZEPAM
  7. TRINTELLIX [Concomitant]
     Active Substance: VORTIOXETINE HYDROBROMIDE
  8. OMEPRAZOLE [Concomitant]
     Active Substance: OMEPRAZOLE
  9. ZOFRAN [Concomitant]
     Active Substance: ONDANSETRON HYDROCHLORIDE

REACTIONS (2)
  - Gastrointestinal disorder [None]
  - Incontinence [None]

NARRATIVE: CASE EVENT DATE: 20220902
